FAERS Safety Report 4621252-9 (Version None)
Quarter: 2005Q1

REPORT INFORMATION
  Report Type: 
  Country: None (occurrence: None)
  Receive Date: 20050322
  Receipt Date: 20050322
  Transmission Date: 20050727
  Serious: Yes (Hospitalization)
  Sender: FDA-Public Use
  Company Number: None

PATIENT
  Age: 74 Year
  Sex: Male
  Weight: 90 kg

DRUGS (10)
  1. WARFARIN SODIUM [Suspect]
     Indication: DEEP VEIN THROMBOSIS
     Dosage: 2 MG DAILY-ORAL
     Route: 048
     Dates: start: 20000101
  2. WARFARIN SODIUM [Suspect]
     Indication: FACTOR V LEIDEN MUTATION
     Dosage: 2 MG DAILY-ORAL
     Route: 048
     Dates: start: 20000101
  3. ENOXAPARIN SODIUM [Suspect]
     Dosage: 150 MG DAILY -SQ
     Route: 058
     Dates: start: 20050126, end: 20050218
  4. ASPIRIN [Concomitant]
  5. CITALOPRAM HYDROBROMIDE [Concomitant]
  6. CLONAZEPAM [Concomitant]
  7. DOCUSATE [Concomitant]
  8. FOLIC ACID [Concomitant]
  9. ISOSORBIDE MONONITRATE [Concomitant]
  10. LISINOPRIL [Concomitant]

REACTIONS (5)
  - HAEMORRHAGE [None]
  - HAEMORRHOIDAL HAEMORRHAGE [None]
  - RECTAL HAEMORRHAGE [None]
  - SCAR [None]
  - URINARY BLADDER HAEMORRHAGE [None]
